FAERS Safety Report 5262113-4 (Version None)
Quarter: 2007Q1

REPORT INFORMATION
  Report Type: 
  Country: None (occurrence: None)
  Receive Date: 20070311
  Receipt Date: 20070228
  Transmission Date: 20070707
  Serious: Yes (Other)
  Sender: FDA-Public Use
  Company Number: 2006UW11258

PATIENT
  Sex: Female
  Weight: 95.5 kg

DRUGS (10)
  1. SEROQUEL [Suspect]
     Indication: DEPRESSION
     Route: 048
     Dates: start: 19970101
  2. SEROQUEL [Suspect]
     Indication: SLEEP DISORDER
     Route: 048
     Dates: start: 19970101
  3. ABILIFY [Concomitant]
  4. CLOZARIL [Concomitant]
  5. RISPERDAL [Concomitant]
  6. SOLIAN [Concomitant]
  7. STELAZINE [Concomitant]
  8. THORAZINE [Concomitant]
  9. TRILAFON [Concomitant]
  10. ZYPREXA [Concomitant]

REACTIONS (2)
  - DIABETES MELLITUS [None]
  - INTERVERTEBRAL DISC PROTRUSION [None]
